FAERS Safety Report 5067631-X (Version None)
Quarter: 2006Q3

REPORT INFORMATION
  Report Type: 
  Country: None (occurrence: None)
  Receive Date: 20060731
  Receipt Date: 20060720
  Transmission Date: 20061208
  Serious: Yes (Other)
  Sender: FDA-Public Use
  Company Number: 206089387

PATIENT
  Age: 18 Year
  Sex: Male
  Weight: 54.4316 kg

DRUGS (1)
  1. DRAMAMINE [Suspect]
     Indication: EUPHORIC MOOD
     Dosage: UP TO 24 A DAY EVERY DAY , ORAL
     Route: 048
     Dates: start: 20060101

REACTIONS (2)
  - HALLUCINATION [None]
  - INTENTIONAL DRUG MISUSE [None]
